FAERS Safety Report 13974116 (Version 1)
Quarter: 2017Q3

REPORT INFORMATION
  Report Type: Spontaneous
  Country: US (occurrence: US)
  Receive Date: 20170915
  Receipt Date: 20170915
  Transmission Date: 20171128
  Serious: No
  Sender: FDA-Public Use
  Company Number: US-BAUSCH-BL-2017-004766

PATIENT
  Sex: Male

DRUGS (2)
  1. FLUOROURACIL 5% [Suspect]
     Active Substance: FLUOROURACIL
     Indication: EPHELIDES
  2. FLUOROURACIL 5% [Suspect]
     Active Substance: FLUOROURACIL
     Indication: NEOPLASM MALIGNANT
     Dosage: AS DIRECTED
     Route: 065
     Dates: start: 2017

REACTIONS (5)
  - Drug ineffective [Unknown]
  - Product quality issue [Unknown]
  - Pigmentation disorder [Not Recovered/Not Resolved]
  - Product packaging quantity issue [Unknown]
  - Application site scab [Not Recovered/Not Resolved]

NARRATIVE: CASE EVENT DATE: 2017
